FAERS Safety Report 4467677-6 (Version None)
Quarter: 2004Q4

REPORT INFORMATION
  Report Type: 
  Country: None (occurrence: None)
  Receive Date: 20041004
  Receipt Date: 20041004
  Transmission Date: 20050328
  Serious: Yes (Death)
  Sender: FDA-Public Use
  Company Number: None

PATIENT
  Age: 73 Year
  Sex: Male
  Weight: 81.6475 kg

DRUGS (1)
  1. VIOXX [Suspect]
     Indication: PAIN
     Dates: start: 20040404, end: 20040903

REACTIONS (2)
  - CARDIAC FAILURE [None]
  - SUDDEN DEATH [None]
